FAERS Safety Report 17271022 (Version 2)
Quarter: 2020Q2

REPORT INFORMATION
  Report Type: Report from Study
  Country: US (occurrence: US)
  Receive Date: 20200115
  Receipt Date: 20200427
  Transmission Date: 20200713
  Serious: Yes (Hospitalization, Other)
  Sender: FDA-Public Use
  Company Number: US-SA-2019SA127547

PATIENT
  Age: 20 Year
  Sex: Female

DRUGS (4)
  1. ALGLUCOSIDASE ALFA [Suspect]
     Active Substance: ALGLUCOSIDASE ALFA
     Indication: GLYCOGEN STORAGE DISEASE TYPE II
     Dosage: 2300 MG, QOW
     Route: 041
     Dates: start: 20170615
  2. ALGLUCOSIDASE ALFA [Suspect]
     Active Substance: ALGLUCOSIDASE ALFA
     Dosage: 2300 MG, QOW
     Route: 041
     Dates: start: 20170831
  3. ALGLUCOSIDASE ALFA [Suspect]
     Active Substance: ALGLUCOSIDASE ALFA
     Dosage: 2300 MG, QOW
     Route: 041
     Dates: start: 20190515
  4. ALGLUCOSIDASE ALFA [Suspect]
     Active Substance: ALGLUCOSIDASE ALFA
     Dosage: 2300 MG, QOW
     Route: 041
     Dates: start: 20190917

REACTIONS (19)
  - Loss of consciousness [Unknown]
  - Asthenia [Unknown]
  - Weight decreased [Unknown]
  - Muscular weakness [Unknown]
  - Panic attack [Unknown]
  - Procedural complication [Recovering/Resolving]
  - Headache [Not Recovered/Not Resolved]
  - Malaise [Unknown]
  - Pain [Unknown]
  - Dysphagia [Unknown]
  - Hypersomnia [Unknown]
  - Product dose omission [Unknown]
  - Drug hypersensitivity [Unknown]
  - Aspiration pleural cavity [Recovering/Resolving]
  - Incorrect dose administered [Unknown]
  - Asthenia [Unknown]
  - Ehlers-Danlos syndrome [Unknown]
  - Pain [Recovering/Resolving]
  - Dyspnoea exertional [Unknown]

NARRATIVE: CASE EVENT DATE: 2019
